FAERS Safety Report 19893344 (Version 1)
Quarter: 2021Q3

REPORT INFORMATION
  Report Type: Spontaneous
  Country: US (occurrence: US)
  Receive Date: 20210929
  Receipt Date: 20210929
  Transmission Date: 20211014
  Serious: Yes (Other)
  Sender: FDA-Public Use
  Company Number: US-ROCHE-2920269

PATIENT
  Sex: Male
  Weight: 77.63 kg

DRUGS (15)
  1. XOLAIR [Suspect]
     Active Substance: OMALIZUMAB
  2. PNEUMOCOCCAL POLYSACCHARIDE VACCINE [Concomitant]
     Active Substance: PNEUMOCOCCAL VACCINE POLYVALENT
     Dates: start: 20200123
  3. COSOPT PF [Concomitant]
     Active Substance: DORZOLAMIDE HYDROCHLORIDE\TIMOLOL MALEATE
     Dosage: 2 %?0.5% EYE DROPS IN THE DROPLETTE
     Route: 047
     Dates: start: 20210722
  4. TOBRAMYCIN. [Concomitant]
     Active Substance: TOBRAMYCIN
     Dosage: INHALE 1 PUFF EVERDAY
     Dates: start: 20210818
  5. PNEUMOCOCCAL CONJUGATE VACCINE [Concomitant]
     Active Substance: PNEUMOCOCCAL VACCINE POLYVALENT
     Route: 030
     Dates: start: 20190123
  6. PROLENSA [Concomitant]
     Active Substance: BROMFENAC SODIUM
     Dosage: INSTILL 1 DROP IN LEFT EYE EVERY MORNING
     Route: 047
     Dates: start: 20210310
  7. XOLAIR [Suspect]
     Active Substance: OMALIZUMAB
     Indication: ASTHMA
     Route: 058
     Dates: start: 20210521
  8. AD26.COV2.S. [Concomitant]
     Active Substance: AD26.COV2.S
     Route: 030
     Dates: start: 20210326
  9. PREDNISONE. [Concomitant]
     Active Substance: PREDNISONE
     Route: 048
     Dates: start: 20210921
  10. VITAMIN D3 [Concomitant]
     Active Substance: CHOLECALCIFEROL
     Dates: start: 20210125
  11. LATANOPROST. [Concomitant]
     Active Substance: LATANOPROST
     Dosage: INSTILLL 1 DROP INTO AFFECTED EYE BY OPHTHALMIC ROUTE ONCE DAILY IN THE EVENING
     Route: 047
     Dates: start: 20200901
  12. TDAP [Concomitant]
     Active Substance: TETANUS TOXOID, REDUCED DIPHTHERIA TOXOID AND ACELLULAR PERTUSSIS VACCINE ADSORBED, TDAP
     Dates: start: 20100809
  13. XOLAIR [Suspect]
     Active Substance: OMALIZUMAB
  14. ZOSTER [Concomitant]
     Dates: start: 20160414
  15. TESSALON [Concomitant]
     Active Substance: BENZONATATE
     Route: 048
     Dates: start: 20210921

REACTIONS (4)
  - Pulmonary embolism [Unknown]
  - COVID-19 [Unknown]
  - Blood pressure increased [Unknown]
  - Vitamin D deficiency [Unknown]
